FAERS Safety Report 19839489 (Version 2)
Quarter: 2021Q3

REPORT INFORMATION
  Report Type: Report from Study
  Country: US (occurrence: US)
  Receive Date: 20210916
  Receipt Date: 20210927
  Transmission Date: 20211014
  Serious: Yes (Hospitalization)
  Sender: FDA-Public Use
  Company Number: US-INSMED, INC.-2021-09371-US

PATIENT
  Age: 40 Year
  Sex: Female

DRUGS (1)
  1. ARIKAYCE [Suspect]
     Active Substance: AMIKACIN
     Indication: MYCOBACTERIUM AVIUM COMPLEX INFECTION
     Dosage: 590 MILLIGRAM, QD
     Route: 055
     Dates: start: 20210830, end: 202109

REACTIONS (8)
  - Asthenia [Recovered/Resolved]
  - Fatigue [Recovered/Resolved]
  - Pneumonia [Unknown]
  - Dysgeusia [Recovered/Resolved]
  - Respiratory failure [Unknown]
  - Cough [Recovered/Resolved]
  - Dizziness [Recovered/Resolved]
  - Therapy interrupted [Unknown]

NARRATIVE: CASE EVENT DATE: 2021
